FAERS Safety Report 14707532 (Version 1)
Quarter: 2018Q2

REPORT INFORMATION
  Report Type: Spontaneous
  Country: US (occurrence: US)
  Receive Date: 20180403
  Receipt Date: 20180403
  Transmission Date: 20180711
  Serious: No
  Sender: FDA-Public Use
  Company Number: US-009507513-1803USA003236

PATIENT
  Age: 66 Year
  Sex: Female

DRUGS (2)
  1. INTRON A [Suspect]
     Active Substance: INTERFERON ALFA-2B
     Dosage: UNK
     Route: 058
  2. INTRON A [Suspect]
     Active Substance: INTERFERON ALFA-2B
     Indication: MYCOSIS FUNGOIDES
     Dosage: 3 MILLION UNITS, MONDAY, WEDNESDAY AND FRIDAY
     Route: 058
     Dates: start: 201801

REACTIONS (3)
  - Product use in unapproved indication [Unknown]
  - Fatigue [Unknown]
  - Fatigue [Not Recovered/Not Resolved]

NARRATIVE: CASE EVENT DATE: 201801
